FAERS Safety Report 4532480-5 (Version None)
Quarter: 2004Q4

REPORT INFORMATION
  Report Type: 
  Country: None (occurrence: None)
  Receive Date: 20041220
  Receipt Date: 20041210
  Transmission Date: 20050328
  Serious: Yes (Life-Threatening, Hospitalization, Other)
  Sender: FDA-Public Use
  Company Number: PL-MERCK-0412POL00004

PATIENT
  Age: 18 Year
  Sex: Female
  Weight: 35 kg

DRUGS (3)
  1. CANCIDAS [Suspect]
     Indication: SYSTEMIC MYCOSIS
     Route: 051
     Dates: start: 20041125, end: 20041130
  2. AMPHOTERICIN B [Concomitant]
     Route: 065
  3. VORICONAZOLE [Concomitant]
     Route: 065

REACTIONS (1)
  - BONE MARROW DEPRESSION [None]
